FAERS Safety Report 21401826 (Version 1)
Quarter: 2022Q4

REPORT INFORMATION
  Report Type: Spontaneous
  Country: US (occurrence: None)
  Receive Date: 20221003
  Receipt Date: 20221003
  Transmission Date: 20230113
  Serious: Yes (Hospitalization, Other)
  Sender: FDA-Public Use
  Company Number: US-Hikma Pharmaceuticals USA Inc.-US-H14001-22-02504

PATIENT
  Sex: Female
  Weight: 69.5 kg

DRUGS (2)
  1. LITHIUM [Suspect]
     Active Substance: LITHIUM
     Indication: Product used for unknown indication
     Dosage: UNKNOWN
     Route: 065
  2. HETLIOZ [Suspect]
     Active Substance: TASIMELTEON
     Indication: Chromosomal deletion
     Route: 048
     Dates: end: 20220407

REACTIONS (5)
  - COVID-19 [Not Recovered/Not Resolved]
  - Urinary tract infection [Not Recovered/Not Resolved]
  - Dehydration [Not Recovered/Not Resolved]
  - Ill-defined disorder [Unknown]
  - Adverse event [Unknown]
